FAERS Safety Report 9300524 (Version 1)
Quarter: 2012Q4

REPORT INFORMATION
  Report Type: Spontaneous
  Country: US (occurrence: None)
  Receive Date: 20121116
  Receipt Date: 20121116
  Transmission Date: 20130627
  Serious: Yes (Hospitalization)
  Sender: FDA-Public Use
  Company Number: UTC-025275

PATIENT
  Age: 71 Year
  Sex: Female
  Weight: 6727 kg

DRUGS (2)
  1. TYVASO (6 MICROGRAM, AEROSOL FOR INHALATION)(TREPROSTINIL SODIUM) [Suspect]
     Indication: CHRONIC PULMONARY HEART DISEASE
     Dosage: (4 in 1 D)
     Route: 055
     Dates: start: 20120629
  2. COUMADIN (WARFARIN SODIUM) [Concomitant]

REACTIONS (4)
  - Throat irritation [None]
  - Vomiting [None]
  - Retching [None]
  - Drug administration error [None]
